FAERS Safety Report 18103046 (Version 1)
Quarter: 2020Q3

REPORT INFORMATION
  Report Type: Spontaneous
  Country: FR (occurrence: FR)
  Receive Date: 20200803
  Receipt Date: 20200803
  Transmission Date: 20201103
  Serious: Yes (Hospitalization)
  Sender: FDA-Public Use
  Company Number: FR-TEVA-2020-FR-1808126

PATIENT
  Age: 68 Year
  Sex: Male
  Weight: 85 kg

DRUGS (13)
  1. EUPANTOL [Concomitant]
     Active Substance: PANTOPRAZOLE SODIUM
     Route: 048
     Dates: end: 20200130
  2. CARDENSIEL 5 MG, COMPRIME PELLICULE SECABLE [Concomitant]
     Active Substance: BISOPROLOL FUMARATE
     Route: 048
  3. SIMVASTATINE [Suspect]
     Active Substance: SIMVASTATIN
     Route: 048
     Dates: end: 20200525
  4. EZETROL 10 MG, COMPRIME [Suspect]
     Active Substance: EZETIMIBE
     Route: 048
     Dates: end: 20200525
  5. LEXOMIL 6 MG, COMPRIME QUADRISECABLE [Concomitant]
     Route: 048
  6. ACIDE FUSIDIQUE [Suspect]
     Active Substance: FUSIDIC ACID
     Indication: OSTEOMYELITIS
     Route: 048
     Dates: start: 20200417, end: 20200520
  7. TRIMETHOPRIME [Suspect]
     Active Substance: TRIMETHOPRIM
     Indication: OSTEOMYELITIS
     Route: 048
     Dates: start: 20200417, end: 20200520
  8. COUMADINE 5 MG, COMPRIME SECABLE [Concomitant]
     Active Substance: WARFARIN SODIUM
     Route: 048
  9. ALLOPURINOL. [Concomitant]
     Active Substance: ALLOPURINOL
     Route: 048
  10. ALDACTONE [Concomitant]
     Active Substance: SPIRONOLACTONE
     Route: 048
  11. KARDEGIC [Concomitant]
     Active Substance: ASPIRIN DL-LYSINE
     Route: 048
  12. SULFAMETHOXAZOLE [Suspect]
     Active Substance: SULFAMETHOXAZOLE
     Indication: OSTEOMYELITIS
     Route: 048
     Dates: start: 20200417, end: 20200520
  13. TRIATEC 1,25 MG, COMPRIME [Concomitant]
     Route: 048

REACTIONS (2)
  - Rash pruritic [Recovered/Resolved]
  - Hepatitis acute [Recovered/Resolved]

NARRATIVE: CASE EVENT DATE: 202005
